FAERS Safety Report 20884901 (Version 1)
Quarter: 2022Q2

REPORT INFORMATION
  Report Type: Spontaneous
  Country: GB (occurrence: GB)
  Receive Date: 20220527
  Receipt Date: 20220527
  Transmission Date: 20220721
  Serious: Yes (Disabling, Other)
  Sender: FDA-Public Use
  Company Number: None

PATIENT
  Age: 55 Year
  Sex: Female
  Weight: 58 kg

DRUGS (12)
  1. IVABRADINE [Suspect]
     Active Substance: IVABRADINE
     Indication: Heart rate abnormal
     Dosage: 2.5 MG, QD
     Route: 065
     Dates: start: 20220515, end: 20220515
  2. AMITRIPTYLINE [Concomitant]
     Active Substance: AMITRIPTYLINE
     Indication: Coccydynia
     Dosage: UNK
     Dates: start: 2013
  3. CAFFEINE [Concomitant]
     Active Substance: CAFFEINE
     Indication: Pain
     Dosage: UNK
  4. ACETAMINOPHEN [Concomitant]
     Active Substance: ACETAMINOPHEN
     Indication: Pain
     Dosage: UNK
  5. ASPIRIN [Concomitant]
     Active Substance: ASPIRIN
     Indication: Pain
     Dosage: UNK
  6. BUTYLSCOPOLAMINE BROMIDE [Concomitant]
     Active Substance: BUTYLSCOPOLAMINE BROMIDE
     Indication: Rectal spasm
     Dosage: UNK
     Dates: start: 2014
  7. BECLOMETHASONE DIPROPIONATE [Concomitant]
     Active Substance: BECLOMETHASONE DIPROPIONATE
     Indication: Asthma
     Dosage: UNK
     Dates: start: 2019
  8. CALCIUM CARBONATE\CHOLECALCIFEROL [Concomitant]
     Active Substance: CALCIUM CARBONATE\CHOLECALCIFEROL
     Indication: Osteoporosis
     Dosage: UNK
     Dates: start: 201705
  9. ACETAMINOPHEN\CAFFEINE [Concomitant]
     Active Substance: ACETAMINOPHEN\CAFFEINE
     Indication: Pain
     Dosage: UNK
  10. LIDOCAINE [Concomitant]
     Active Substance: LIDOCAINE
     Indication: Pudendal canal syndrome
     Dosage: UNK
     Dates: start: 2017
  11. ESTRIOL [Concomitant]
     Active Substance: ESTRIOL
     Indication: Atrophic vulvovaginitis
     Dosage: UNK
     Dates: start: 2019
  12. ALBUTEROL [Concomitant]
     Active Substance: ALBUTEROL
     Indication: Asthma
     Dosage: UNK
     Dates: start: 2019

REACTIONS (9)
  - Angina pectoris [Recovered/Resolved]
  - Nausea [Recovered/Resolved]
  - Vomiting [Recovered/Resolved]
  - Migraine [Recovered/Resolved]
  - Muscular weakness [Recovered/Resolved]
  - Headache [Recovering/Resolving]
  - Headache [Not Recovered/Not Resolved]
  - Asthenia [Unknown]
  - Off label use [Unknown]

NARRATIVE: CASE EVENT DATE: 20220101
